FAERS Safety Report 15098657 (Version 2)
Quarter: 2018Q3

REPORT INFORMATION
  Report Type: Report from Study
  Country: CA (occurrence: CA)
  Receive Date: 20180702
  Receipt Date: 20180713
  Transmission Date: 20181010
  Serious: Yes (Death, Hospitalization)
  Sender: FDA-Public Use
  Company Number: CA-TAIHO ONCOLOGY INC-EU-2018-00777

PATIENT
  Age: 64 Year
  Sex: Female

DRUGS (1)
  1. LONSURF [Suspect]
     Active Substance: TIPIRACIL HYDROCHLORIDE\TRIFLURIDINE
     Indication: COLON CANCER METASTATIC
     Dosage: CYCLE 1
     Route: 048
     Dates: start: 20180508, end: 20180607

REACTIONS (4)
  - Muscular weakness [Not Recovered/Not Resolved]
  - Acute kidney injury [Fatal]
  - Disease progression [Unknown]
  - Hypercalcaemia [Fatal]

NARRATIVE: CASE EVENT DATE: 2018
